FAERS Safety Report 9317827 (Version 1)
Quarter: 2013Q2

REPORT INFORMATION
  Report Type: Spontaneous
  Country: US (occurrence: US)
  Receive Date: 20130530
  Receipt Date: 20130530
  Transmission Date: 20140414
  Serious: No
  Sender: FDA-Public Use
  Company Number: US-GLAXOSMITHKLINE-A0986365A

PATIENT
  Age: 52 Year
  Sex: Male

DRUGS (4)
  1. VENTOLIN [Suspect]
     Indication: DYSPNOEA
     Dosage: 1PUFF AS REQUIRED
     Route: 055
     Dates: start: 2011
  2. VICODIN [Concomitant]
  3. NAPROXEN [Concomitant]
  4. HYTRIN [Concomitant]

REACTIONS (5)
  - Arthralgia [Unknown]
  - Back pain [Unknown]
  - Pain in extremity [Unknown]
  - Dyspnoea [Unknown]
  - Throat irritation [Unknown]
